FAERS Safety Report 6547837-0 (Version None)
Quarter: 2010Q1

REPORT INFORMATION
  Report Type: 
  Country: None (occurrence: None)
  Receive Date: 20100124
  Receipt Date: 20091102
  Transmission Date: 20100710
  Serious: No
  Sender: FDA-Public Use
  Company Number: US-ALEXION-A200900765

PATIENT
  Sex: Male

DRUGS (7)
  1. SOLIRIS [Suspect]
     Indication: PAROXYSMAL NOCTURNAL HAEMOGLOBINURIA
     Dosage: 600 MG, QW
     Route: 042
     Dates: start: 20070910, end: 20071001
  2. SOLIRIS [Suspect]
     Indication: APLASTIC ANAEMIA
     Dosage: 900 MG, Q2W
     Route: 042
     Dates: start: 20071008
  3. ASPIRIN [Concomitant]
  4. METOPROLOL TARTRATE [Concomitant]
  5. OMEPRAZOLE [Concomitant]
  6. METFORMIN [Concomitant]
  7. SIMVASTATIN [Concomitant]

REACTIONS (8)
  - ASTHENIA [None]
  - BONE MARROW FAILURE [None]
  - CHROMATURIA [None]
  - FATIGUE [None]
  - HAEMOGLOBIN DECREASED [None]
  - PAIN [None]
  - PYREXIA [None]
  - VIRAL INFECTION [None]
